FAERS Safety Report 9441102 (Version 2)
Quarter: 2013Q3

REPORT INFORMATION
  Report Type: Spontaneous
  Country: US (occurrence: US)
  Receive Date: 20130805
  Receipt Date: 20130819
  Transmission Date: 20140515
  Serious: Yes (Other)
  Sender: FDA-Public Use
  Company Number: US-ABBOTT-13P-163-1125874-00

PATIENT
  Age: 61 Year
  Sex: Male
  Weight: 88.53 kg

DRUGS (8)
  1. HUMIRA [Suspect]
     Indication: RHEUMATOID ARTHRITIS
     Dates: start: 20130701, end: 201307
  2. HUMIRA [Suspect]
     Indication: COLITIS ULCERATIVE
  3. COUMADIN [Concomitant]
     Indication: THROMBOSIS
  4. APRISO [Concomitant]
     Indication: COLITIS ULCERATIVE
  5. SPRIVA [Concomitant]
     Indication: CHRONIC OBSTRUCTIVE PULMONARY DISEASE
  6. BYSTOLIC [Concomitant]
     Indication: HYPERTENSION
  7. ZOLPIDIM [Concomitant]
     Indication: INSOMNIA
  8. PREDNISONE [Concomitant]
     Indication: COLITIS ULCERATIVE

REACTIONS (16)
  - Blindness unilateral [Not Recovered/Not Resolved]
  - Headache [Not Recovered/Not Resolved]
  - International normalised ratio decreased [Unknown]
  - Localised infection [Unknown]
  - Kidney infection [Unknown]
  - Cystitis [Unknown]
  - Back pain [Unknown]
  - Melanocytic naevus [Unknown]
  - Eye pain [Unknown]
  - Macular fibrosis [Unknown]
  - Vitreous adhesions [Unknown]
  - Retinal infarction [Unknown]
  - Eye oedema [Unknown]
  - Eye disorder [Unknown]
  - Retinal disorder [Unknown]
  - Visual impairment [Unknown]
